FAERS Safety Report 4778597-1 (Version None)
Quarter: 2005Q3

REPORT INFORMATION
  Report Type: 
  Country: None (occurrence: None)
  Receive Date: 20050926
  Receipt Date: 20050809
  Transmission Date: 20060218
  Serious: Yes (Hospitalization)
  Sender: FDA-Public Use
  Company Number: 2005AP04335

PATIENT
  Age: 24498 Day
  Sex: Male

DRUGS (8)
  1. SEROQUEL [Suspect]
     Indication: SEDATION
     Route: 048
     Dates: start: 20041101
  2. SEROQUEL [Suspect]
     Route: 048
     Dates: start: 20050719, end: 20050720
  3. SILECE [Suspect]
     Indication: INSOMNIA
     Route: 048
  4. SILECE [Suspect]
     Route: 048
     Dates: start: 20050719, end: 20050720
  5. PROMETHAZINE HCL [Suspect]
     Indication: PARKINSON'S DISEASE
     Route: 048
     Dates: start: 20050719, end: 20050720
  6. LIMAS [Concomitant]
     Indication: AFFECT LABILITY
     Route: 048
     Dates: start: 20050719, end: 20050720
  7. AKINETON [Concomitant]
     Indication: PARKINSON'S DISEASE
     Route: 048
     Dates: start: 20050719, end: 20050720
  8. PURSENNID [Concomitant]
     Indication: CONSTIPATION
     Route: 048
     Dates: start: 20050719, end: 20050720

REACTIONS (6)
  - ANOREXIA [None]
  - DEHYDRATION [None]
  - GRANULOCYTE COUNT DECREASED [None]
  - PYREXIA [None]
  - SOMNOLENCE [None]
  - WHITE BLOOD CELL COUNT INCREASED [None]
